FAERS Safety Report 9490909 (Version 1)
Quarter: 2013Q3

REPORT INFORMATION
  Report Type: Spontaneous
  Country: US (occurrence: US)
  Receive Date: 20130830
  Receipt Date: 20130830
  Transmission Date: 20140515
  Serious: No
  Sender: FDA-Public Use
  Company Number: US-PFIZER INC-2013247465

PATIENT
  Age: 53 Year
  Sex: Female
  Weight: 72.6 kg

DRUGS (4)
  1. LEVOTHYROXINE SODIUM [Suspect]
     Indication: THYROID DISORDER
     Dosage: 112 UG, 1X/DAY
     Route: 048
     Dates: start: 201304, end: 201304
  2. LEVOTHYROXINE SODIUM [Suspect]
     Indication: GOITRE
  3. SYNTHROID [Suspect]
     Indication: THYROID DISORDER
     Dosage: 112 UG, 1X/DAY
     Route: 048
     Dates: start: 201304, end: 201308
  4. SYNTHROID [Suspect]
     Indication: GOITRE

REACTIONS (2)
  - Palpitations [Unknown]
  - Heart rate increased [Unknown]
